FAERS Safety Report 13200116 (Version 4)
Quarter: 2017Q1

REPORT INFORMATION
  Report Type: Report from Study
  Country: KR (occurrence: KR)
  Receive Date: 20170208
  Receipt Date: 20170331
  Transmission Date: 20170428
  Serious: Yes (Hospitalization)
  Sender: FDA-Public Use
  Company Number: KR-ROCHE-1889709

PATIENT
  Age: 59 Year
  Sex: Female
  Weight: 58 kg

DRUGS (27)
  1. ACTOSMET [Concomitant]
     Indication: DIABETES MELLITUS
     Dosage: 15/850
     Route: 048
     Dates: start: 20140630, end: 20170131
  2. TRIDOL [Concomitant]
     Active Substance: TRAMADOL HYDROCHLORIDE
     Indication: PLEURITIC PAIN
     Route: 042
     Dates: start: 20170313, end: 20170313
  3. PENIRAMIN [Concomitant]
     Indication: HYPERGLYCAEMIA
     Route: 042
     Dates: start: 20170327, end: 20170327
  4. ATEZOLIZUMAB [Suspect]
     Active Substance: ATEZOLIZUMAB
     Indication: BRAIN CANCER METASTATIC
     Dosage: MOST RECENT DOSE OF ATEZOLIZUMAB PRIOR ONSET OF FIRST EPISODE OF GENERAL WEAKNESS: 12/JAN/2017?MOST
     Route: 042
     Dates: start: 20161222
  5. FURTMAN INJ. [Concomitant]
     Dosage: END 30/MAR/2017
     Route: 042
     Dates: start: 20170318
  6. FEROBA-YOU [Concomitant]
     Indication: ANAEMIA
     Dosage: FEROBA-YOU SR
     Route: 048
     Dates: start: 20160803
  7. GLUPA [Concomitant]
     Active Substance: METFORMIN HYDROCHLORIDE
     Route: 048
     Dates: start: 20170201
  8. UNASYN (SULTAMICILLIN TOSILATE) [Concomitant]
     Indication: PYREXIA
     Route: 048
     Dates: start: 20170316, end: 20170318
  9. MAGNES [Concomitant]
     Indication: HYPOMAGNESAEMIA
     Route: 048
     Dates: start: 20141117
  10. TANTUM (SOUTH KOREA) [Concomitant]
     Indication: STOMATITIS
     Dosage: 1 OTHER
     Route: 061
     Dates: start: 20150701
  11. ACTOS [Concomitant]
     Active Substance: PIOGLITAZONE HYDROCHLORIDE
     Indication: DIABETES MELLITUS
     Route: 048
     Dates: start: 20170201, end: 20170319
  12. FURTMAN INJ. [Concomitant]
     Indication: MALNUTRITION
     Route: 042
     Dates: start: 20170310, end: 20170316
  13. DICAMAX [Concomitant]
     Indication: HYPOCALCAEMIA
     Route: 048
     Dates: start: 20140818
  14. TARGIN [Concomitant]
     Active Substance: NALOXONE HYDROCHLORIDE\OXYCODONE HYDROCHLORIDE
     Indication: PLEURITIC PAIN
     Dosage: TARGIN CR 10/5
     Route: 048
     Dates: start: 20170131, end: 20170219
  15. TAZOLACTAM [Concomitant]
     Indication: PYREXIA
     Route: 042
     Dates: start: 20170310, end: 20170316
  16. CODEIN [Concomitant]
     Active Substance: CODEINE
     Indication: PRODUCTIVE COUGH
     Route: 048
     Dates: start: 20161214, end: 20170125
  17. CODEIN [Concomitant]
     Active Substance: CODEINE
     Indication: PRODUCTIVE COUGH
     Route: 048
     Dates: start: 20170126, end: 20170226
  18. XYZAL [Concomitant]
     Active Substance: LEVOCETIRIZINE DIHYDROCHLORIDE
     Indication: PRODUCTIVE COUGH
     Route: 048
     Dates: start: 20161221, end: 20170226
  19. PSEUDOEPHEDRINE HYDROCHLORIDE. [Concomitant]
     Active Substance: PSEUDOEPHEDRINE HYDROCHLORIDE
     Indication: PRODUCTIVE COUGH
     Route: 048
     Dates: start: 20170126, end: 20170201
  20. IRCODON [Concomitant]
     Indication: PLEURITIC PAIN
     Route: 048
     Dates: start: 20170131, end: 20170317
  21. TRIDOL [Concomitant]
     Active Substance: TRAMADOL HYDROCHLORIDE
     Route: 042
     Dates: start: 20170326, end: 20170326
  22. MOXR0916 [Suspect]
     Active Substance: INVESTIGATIONAL PRODUCT
     Indication: BRAIN CANCER METASTATIC
     Dosage: MOST RECENT DOSE OF MOXR0916 PRIOR TO ONSET OF FIRST EPISODE OF GENERAL WEAKNESS: 12/JAN/2017: 300 M
     Route: 042
     Dates: start: 20161222
  23. CYNACTEN [Concomitant]
     Indication: PREMEDICATION
     Route: 042
     Dates: start: 20170314, end: 20170314
  24. FEROBA-YOU [Concomitant]
     Route: 048
     Dates: start: 20170314
  25. GLUPA [Concomitant]
     Active Substance: METFORMIN HYDROCHLORIDE
     Indication: DIABETES MELLITUS
     Route: 048
     Dates: start: 20140521, end: 20170320
  26. HUMULIN R [Concomitant]
     Active Substance: INSULIN HUMAN
     Indication: HYPERGLYCAEMIA
     Dosage: 20 UNITS
     Route: 042
     Dates: start: 20170310, end: 20170316
  27. OLIMEL [Concomitant]
     Active Substance: AMINO ACIDS\DEXTROSE\SOYBEAN OIL
     Dosage: PERI OLIMEL N4E INJ
     Route: 042
     Dates: start: 20170318, end: 20170322

REACTIONS (2)
  - Asthenia [Recovered/Resolved]
  - Pyrexia [Recovered/Resolved]

NARRATIVE: CASE EVENT DATE: 20170130
